FAERS Safety Report 15584442 (Version 1)
Quarter: 2018Q4

REPORT INFORMATION
  Report Type: Spontaneous
  Country: US (occurrence: US)
  Receive Date: 20181101
  Receipt Date: 20181101
  Transmission Date: 20190205
  Serious: Yes (Hospitalization)
  Sender: FDA-Public Use
  Company Number: None

PATIENT
  Age: 38 Year
  Sex: Female
  Weight: 67 kg

DRUGS (4)
  1. PERTUZUMAB. [Suspect]
     Active Substance: PERTUZUMAB
     Indication: BREAST CANCER
     Route: 042
     Dates: start: 20180727, end: 20180921
  2. CARBOPLATIN AUC2 [Suspect]
     Active Substance: CARBOPLATIN
     Indication: BREAST CANCER
     Route: 042
     Dates: start: 20180727, end: 20181005
  3. TRASTUZUMAB 8MG/KG C1, 6MG/KG C2-6 [Suspect]
     Active Substance: TRASTUZUMAB
     Indication: BREAST CANCER
     Route: 042
     Dates: start: 20180727, end: 20180921
  4. PACLITAXEL. [Suspect]
     Active Substance: PACLITAXEL
     Indication: BREAST CANCER
     Route: 042
     Dates: start: 20180727, end: 20181005

REACTIONS (7)
  - Packed red blood cell transfusion [None]
  - Sepsis [None]
  - Alanine aminotransferase increased [None]
  - Urinary tract infection [None]
  - Hypokalaemia [None]
  - Anaemia [None]
  - Kidney infection [None]

NARRATIVE: CASE EVENT DATE: 20181013
